FAERS Safety Report 8016610-9 (Version None)
Quarter: 2011Q4

REPORT INFORMATION
  Report Type: 
  Country: None (occurrence: None)
  Receive Date: 20111231
  Receipt Date: 20111223
  Transmission Date: 20120403
  Serious: Yes (Other)
  Sender: FDA-Public Use
  Company Number: GB-BAYER-2011-123776

PATIENT
  Age: 25 Year
  Sex: Female

DRUGS (2)
  1. CONTRACEPTIVES NOS [Concomitant]
  2. CLOTRIMAZOLE [Suspect]
     Indication: CANDIDIASIS
     Dosage: UNK
     Route: 067
     Dates: start: 20111222

REACTIONS (1)
  - VAGINAL HAEMORRHAGE [None]
